FAERS Safety Report 17205367 (Version 1)
Quarter: 2020Q1

REPORT INFORMATION
  Report Type: Spontaneous
  Country: US (occurrence: US)
  Receive Date: 20191226
  Receipt Date: 20191226
  Transmission Date: 20200409
  Serious: Yes (Hospitalization)
  Sender: FDA-Public Use
  Company Number: None

PATIENT
  Age: 60 Year
  Sex: Male

DRUGS (11)
  1. MELOXICAM TAB 15MG [Concomitant]
     Active Substance: MELOXICAM
  2. VOTRIENT [Suspect]
     Active Substance: PAZOPANIB HYDROCHLORIDE
  3. RANITIDINE TAB 15 MG [Concomitant]
  4. PANTOPRAZOLE TAB 40MG [Concomitant]
  5. OXYCODONE TAB 10MG [Concomitant]
  6. TAMSULOSIN CAP 0.4 MG [Concomitant]
  7. DOK CAP 100MG [Concomitant]
  8. GABAPENTIN TAB 60MG [Concomitant]
  9. ATORVASTATIN TAB 20 MG [Concomitant]
  10. ESCITALOPRAM TAB 20MG [Concomitant]
  11. MIRTAZAPINE TAB 15MG [Concomitant]

REACTIONS (1)
  - Cancer surgery [None]
